FAERS Safety Report 19292966 (Version 2)
Quarter: 2021Q3

REPORT INFORMATION
  Report Type: Spontaneous
  Country: US (occurrence: US)
  Receive Date: 20210524
  Receipt Date: 20210722
  Transmission Date: 20211014
  Serious: No
  Sender: FDA-Public Use
  Company Number: US-SA-2021SA070287

PATIENT
  Age: 23 Year
  Sex: Female

DRUGS (3)
  1. LOESTRIN NOS [Concomitant]
     Active Substance: ETHINYL ESTRADIOL\NORETHINDRONE ACETATE
     Dosage: 1.5?0.03MG
  2. DUPIXENT [Suspect]
     Active Substance: DUPILUMAB
     Indication: DERMATITIS ATOPIC
     Dosage: 600 MG, 1X
     Route: 058
     Dates: start: 20200801, end: 20200801
  3. DUPIXENT [Suspect]
     Active Substance: DUPILUMAB
     Indication: DERMATITIS ALLERGIC
     Dosage: 300 MG, QOW
     Route: 058

REACTIONS (5)
  - Injection site pain [Not Recovered/Not Resolved]
  - Product use issue [Unknown]
  - Product use in unapproved indication [Unknown]
  - Rash [Unknown]
  - Eczema [Unknown]

NARRATIVE: CASE EVENT DATE: 202105
